FAERS Safety Report 14599622 (Version 1)
Quarter: 2018Q1

REPORT INFORMATION
  Report Type: Spontaneous
  Country: US (occurrence: US)
  Receive Date: 20180304
  Receipt Date: 20180304
  Transmission Date: 20180509
  Serious: No
  Sender: FDA-Public Use
  Company Number: None

PATIENT
  Age: 33 Year
  Sex: Female
  Weight: 55.35 kg

DRUGS (7)
  1. PROBIOTIC [Concomitant]
     Active Substance: PROBIOTICS NOS
  2. FLUCONZANOLE TABLET USP [Suspect]
     Active Substance: FLUCONAZOLE
     Indication: FUNGAL INFECTION
     Dosage: ?          QUANTITY:1 TABLET(S);?
     Route: 048
     Dates: start: 20180303, end: 20180303
  3. LEVOTHYRONIXE [Concomitant]
  4. BIRTH CONTROL PILL [Concomitant]
     Active Substance: UNSPECIFIED INGREDIENT
  5. TOPAMAX [Concomitant]
     Active Substance: TOPIRAMATE
  6. VITAMIN B [Concomitant]
     Active Substance: VITAMIN B
  7. VITAMIN D [Concomitant]
     Active Substance: CHOLECALCIFEROL

REACTIONS (4)
  - Rash pruritic [None]
  - Paraesthesia oral [None]
  - Throat irritation [None]
  - Rash [None]

NARRATIVE: CASE EVENT DATE: 20180303
